FAERS Safety Report 25431161 (Version 1)
Quarter: 2025Q2

REPORT INFORMATION
  Report Type: Spontaneous
  Country: US (occurrence: None)
  Receive Date: 20250613
  Receipt Date: 20250613
  Transmission Date: 20250717
  Serious: No
  Sender: OREXO
  Company Number: US-Orexo US, Inc.-ORE202504-000019

PATIENT
  Sex: Female
  Weight: 64.86 kg

DRUGS (4)
  1. ZUBSOLV [Suspect]
     Active Substance: BUPRENORPHINE HYDROCHLORIDE\NALOXONE HYDROCHLORIDE
     Indication: Drug dependence
     Route: 060
  2. ZUBSOLV [Suspect]
     Active Substance: BUPRENORPHINE HYDROCHLORIDE\NALOXONE HYDROCHLORIDE
     Route: 060
  3. VICODIN [Concomitant]
     Active Substance: ACETAMINOPHEN\HYDROCODONE BITARTRATE
     Indication: Product used for unknown indication
     Route: 065
  4. SOMA [Concomitant]
     Active Substance: CARISOPRODOL
     Indication: Product used for unknown indication
     Route: 065

REACTIONS (5)
  - Muscle twitching [Recovered/Resolved]
  - Drug withdrawal syndrome [Recovered/Resolved]
  - Wrong technique in product usage process [Unknown]
  - Off label use [Unknown]
  - Product dose omission issue [Unknown]
